FAERS Safety Report 9891260 (Version 1)
Quarter: 2014Q1

REPORT INFORMATION
  Report Type: Spontaneous
  Country: HU (occurrence: None)
  Receive Date: 20140210
  Receipt Date: 20140210
  Transmission Date: 20141002
  Serious: Yes (Other)
  Sender: FDA-Public Use
  Company Number: 2014AP000922

PATIENT
  Sex: Male

DRUGS (2)
  1. ALENDRONATE SODIUM (ALENDRONATE SODIUM) (ALENDRONATE SODIUM) [Suspect]
     Indication: OSTEOPOROSIS
     Route: 048
     Dates: start: 201308, end: 201309
  2. CALCI CHEW D3 [Suspect]
     Route: 048
     Dates: start: 201308, end: 201309

REACTIONS (7)
  - Pain of skin [None]
  - Hallucination, olfactory [None]
  - Hallucination, auditory [None]
  - Toothache [None]
  - Diarrhoea [None]
  - Haematochezia [None]
  - Bone pain [None]
